FAERS Safety Report 12147477 (Version 2)
Quarter: 2016Q1

REPORT INFORMATION
  Report Type: Spontaneous
  Country: GB (occurrence: GB)
  Receive Date: 20160304
  Receipt Date: 20160323
  Transmission Date: 20160526
  Serious: Yes (Other)
  Sender: FDA-Public Use
  Company Number: GB-GLAXOSMITHKLINE-GB2016029863

PATIENT
  Age: 44 Year
  Sex: Male
  Weight: 84.36 kg

DRUGS (3)
  1. PILOCARPINE. [Concomitant]
     Active Substance: PILOCARPINE
     Route: 047
  2. TRAVATAN [Concomitant]
     Active Substance: TRAVOPROST
     Dosage: UNK
  3. BECONASE AQ [Suspect]
     Active Substance: BECLOMETHASONE DIPROPIONATE MONOHYDRATE
     Indication: CHRONIC SINUSITIS
     Dosage: IN EACH NOSTRIL, REGULAR DOSAGE
     Route: 045
     Dates: start: 20160210, end: 20160217

REACTIONS (3)
  - Glaucoma [Unknown]
  - Halo vision [Unknown]
  - Ocular hypertension [Recovered/Resolved]

NARRATIVE: CASE EVENT DATE: 20160217
